FAERS Safety Report 13745705 (Version 2)
Quarter: 2020Q3

REPORT INFORMATION
  Report Type: Report from Study
  Country: UA (occurrence: UA)
  Receive Date: 20170712
  Receipt Date: 20170818
  Transmission Date: 20201104
  Serious: Yes (Hospitalization)
  Sender: FDA-Public Use
  Company Number: UA-ASTRAZENECA-2017SE71416

PATIENT
  Age: 40 Year
  Sex: Male
  Weight: 62 kg

DRUGS (9)
  1. TREMELIMUMAB. [Suspect]
     Active Substance: TREMELIMUMAB
     Indication: HEAD AND NECK CANCER METASTATIC
     Route: 042
     Dates: start: 20170615, end: 20170615
  2. MEDI4736 [Suspect]
     Active Substance: DURVALUMAB
     Indication: HEAD AND NECK CANCER METASTATIC
     Route: 042
     Dates: start: 20170615, end: 20170615
  3. MEDI4736 [Suspect]
     Active Substance: DURVALUMAB
     Indication: HEAD AND NECK CANCER METASTATIC
     Route: 042
     Dates: start: 20170810, end: 20170810
  4. AMOXICLAV [Concomitant]
     Active Substance: AMOXICILLIN\CLAVULANATE POTASSIUM
     Indication: PROPHYLAXIS
     Route: 065
     Dates: start: 20170618
  5. LINEX [Concomitant]
     Active Substance: LACTOBACILLUS ACIDOPHILUS
     Indication: PROPHYLAXIS
     Route: 065
     Dates: start: 20170616
  6. LYSINE [Concomitant]
     Active Substance: LYSINE
     Indication: PROPHYLAXIS
     Route: 065
     Dates: start: 20170614
  7. FLUCONAZOLE. [Concomitant]
     Active Substance: FLUCONAZOLE
     Indication: PROPHYLAXIS
     Route: 065
     Dates: start: 20170616
  8. PHENOL. [Concomitant]
     Active Substance: PHENOL
     Indication: PROPHYLAXIS
     Route: 065
     Dates: start: 20170616
  9. TREMELIMUMAB. [Suspect]
     Active Substance: TREMELIMUMAB
     Indication: HEAD AND NECK CANCER METASTATIC
     Route: 042
     Dates: start: 20170810, end: 20170810

REACTIONS (1)
  - Abscess neck [Recovered/Resolved with Sequelae]

NARRATIVE: CASE EVENT DATE: 20170705
